FAERS Safety Report 10251057 (Version 1)
Quarter: 2014Q2

REPORT INFORMATION
  Report Type: Report from Study
  Country: VN (occurrence: VN)
  Receive Date: 20140620
  Receipt Date: 20140620
  Transmission Date: 20141212
  Serious: Yes (Hospitalization)
  Sender: FDA-Public Use
  Company Number: VN-GILEAD-2014-0106166

PATIENT
  Age: 31 Year
  Sex: Female

DRUGS (6)
  1. EMTRICITABINE/TENOFOVIR DISOPROXIL FUMARATE [Suspect]
     Indication: HIV INFECTION
     Dosage: 1 DF, QD
     Route: 048
     Dates: start: 20140509
  2. EMTRICITABINE/TENOFOVIR DISOPROXIL FUMARATE [Suspect]
     Indication: HEPATITIS C
  3. RALTEGRAVIR [Suspect]
     Indication: HIV INFECTION
     Dosage: 400 MG, BID
     Route: 048
     Dates: start: 20140509
  4. RALTEGRAVIR [Suspect]
     Indication: HEPATITIS C
  5. COTRIMOXAZOLE [Concomitant]
     Indication: ANTIFUNGAL PROPHYLAXIS
     Dosage: UNK
     Dates: start: 201404
  6. COTRIMOXAZOLE [Concomitant]
     Indication: TOXOPLASMOSIS PROPHYLAXIS

REACTIONS (2)
  - Lymphadenitis [Recovering/Resolving]
  - Pyrexia [Recovering/Resolving]
